FAERS Safety Report 6125144-8 (Version None)
Quarter: 2009Q1

REPORT INFORMATION
  Report Type: 
  Country: None (occurrence: None)
  Receive Date: 20090317
  Receipt Date: 20090302
  Transmission Date: 20090719
  Serious: Yes (Other)
  Sender: FDA-Public Use
  Company Number: 2009S1003588

PATIENT
  Age: 58 Year
  Sex: Female

DRUGS (2)
  1. CISPLATIN [Suspect]
     Indication: LUNG ADENOCARCINOMA
     Dates: start: 20050101, end: 20050101
  2. PACLITAXEL [Suspect]
     Indication: LUNG ADENOCARCINOMA
     Dosage: 150 MG/M2; 175 MG/M2;
     Dates: start: 20050101, end: 20050101

REACTIONS (17)
  - ABDOMINAL PAIN [None]
  - AGRANULOCYTOSIS [None]
  - ANAEMIA [None]
  - ARTHRALGIA [None]
  - CONSTIPATION [None]
  - CONTUSION [None]
  - DERMATITIS ACNEIFORM [None]
  - DIARRHOEA [None]
  - HAEMATOTOXICITY [None]
  - HAEMOPTYSIS [None]
  - INCREASED APPETITE [None]
  - LUNG INFECTION [None]
  - MALIGNANT NEOPLASM PROGRESSION [None]
  - NAUSEA [None]
  - NEUTROPENIA [None]
  - SNEEZING [None]
  - THROMBOCYTOPENIA [None]
